FAERS Safety Report 14613810 (Version 6)
Quarter: 2018Q3

REPORT INFORMATION
  Report Type: Spontaneous
  Country: US (occurrence: US)
  Receive Date: 20180308
  Receipt Date: 20180920
  Transmission Date: 20181010
  Serious: Yes (Congenital Anomaly, Other)
  Sender: FDA-Public Use
  Company Number: PHEH2018US008762

PATIENT
  Sex: Male

DRUGS (2)
  1. ZOFRAN [Suspect]
     Active Substance: ONDANSETRON HYDROCHLORIDE
     Indication: FOETAL EXPOSURE DURING PREGNANCY
     Route: 064
  2. ZOFRAN ODT [Suspect]
     Active Substance: ONDANSETRON HYDROCHLORIDE
     Indication: FOETAL EXPOSURE DURING PREGNANCY
     Route: 064

REACTIONS (58)
  - Ventricular septal defect [Unknown]
  - Laevocardia [Unknown]
  - Hypoxia [Unknown]
  - Discomfort [Unknown]
  - Cardiomegaly [Unknown]
  - Eczema [Unknown]
  - Rhinitis allergic [Unknown]
  - Pain in extremity [Unknown]
  - Congenital scoliosis [Unknown]
  - Pulmonary vein stenosis [Unknown]
  - Thrombosis [Unknown]
  - Bronchiolitis [Unknown]
  - Pain [Unknown]
  - Wheezing [Unknown]
  - Vomiting [Unknown]
  - Acute sinusitis [Unknown]
  - Atrial septal defect [Unknown]
  - Hypertension neonatal [Unknown]
  - Chronic obstructive pulmonary disease [Unknown]
  - Tachycardia [Unknown]
  - Heart disease congenital [Unknown]
  - Emotional distress [Unknown]
  - Dermatitis atopic [Unknown]
  - Pyrexia [Unknown]
  - Nasal turbinate hypertrophy [Unknown]
  - Depressed mood [Unknown]
  - Injury [Unknown]
  - Asthma [Unknown]
  - Cardiac aneurysm [Unknown]
  - Impaired gastric emptying [Unknown]
  - Pneumonia [Unknown]
  - Foetal exposure during pregnancy [Unknown]
  - Palpitations [Unknown]
  - Anhedonia [Unknown]
  - Impetigo [Unknown]
  - Otitis media [Unknown]
  - Pharyngitis streptococcal [Unknown]
  - Haematoma [Unknown]
  - Astigmatism [Unknown]
  - Arrhythmia [Unknown]
  - Left ventricular dilatation [Unknown]
  - Bronchial hyperreactivity [Unknown]
  - Upper respiratory tract infection [Unknown]
  - Bronchitis [Unknown]
  - Scarlet fever [Unknown]
  - Attention deficit/hyperactivity disorder [Unknown]
  - Ventricular extrasystoles [Unknown]
  - Rash [Unknown]
  - Conjunctivitis allergic [Unknown]
  - Anxiety [Unknown]
  - Cardiac failure congestive [Unknown]
  - Aspiration [Unknown]
  - Respiratory distress [Unknown]
  - Dyspnoea [Unknown]
  - Deformity [Unknown]
  - Cough [Unknown]
  - Rhinitis [Unknown]
  - Nasal congestion [Unknown]
